FAERS Safety Report 8590115 (Version 5)
Quarter: 2012Q4

REPORT INFORMATION
  Report Type: 
  Country: FR (occurrence: FR)
  Receive Date: 20120601
  Receipt Date: 20120921
  Transmission Date: 20130627
  Serious: Yes (Death, Life-Threatening, Hospitalization)
  Sender: FDA-Public Use
  Company Number: PHHO2012FR008200

PATIENT
  Age: 63 Year
  Sex: Female
  Weight: 52 kg

DRUGS (6)
  1. SOM230 [Suspect]
     Indication: PANCREATIC NEUROENDOCRINE TUMOUR
     Dosage: 60 mg, UNK
     Dates: start: 20120502, end: 20120502
  2. AFINITOR [Suspect]
     Dosage: 10 mg, UNK
     Dates: start: 20120502, end: 20120527
  3. KENZEN [Concomitant]
     Indication: HYPERTENSION
     Dosage: 4 mg, UNK
     Dates: start: 2002
  4. OMEPRAZOLE [Concomitant]
     Indication: GASTROOESOPHAGEAL REFLUX DISEASE
     Dosage: 20 mg, UNK
  5. SPIRIVA [Concomitant]
     Indication: BRONCHITIS
     Dosage: UNK
     Dates: start: 2007
  6. EZETROL [Concomitant]
     Indication: HYPERCHOLESTEROLAEMIA
     Dosage: 10 mg, UNK
     Dates: start: 20120426

REACTIONS (1)
  - Ketoacidosis [Fatal]
